FAERS Safety Report 17818898 (Version 1)
Quarter: 2020Q2

REPORT INFORMATION
  Report Type: Report from Study
  Country: None (occurrence: US)
  Receive Date: 20200522
  Receipt Date: 20200522
  Transmission Date: 20200714
  Serious: Yes (Hospitalization)
  Sender: FDA-Public Use
  Company Number: US-ABBVIE-17K-163-3071397-00

PATIENT
  Sex: Female

DRUGS (3)
  1. IMBRUVICA [Suspect]
     Active Substance: IBRUTINIB
     Dosage: 420 MG, QD
     Route: 048
     Dates: start: 20140123
  2. IMBRUVICA [Suspect]
     Active Substance: IBRUTINIB
     Indication: WALDENSTROM^S MACROGLOBULINAEMIA
     Dosage: 420 MG, QD
     Route: 048
     Dates: end: 2017
  3. IMBRUVICA [Suspect]
     Active Substance: IBRUTINIB
     Route: 048

REACTIONS (13)
  - Fall [Not Recovered/Not Resolved]
  - Injury [Not Recovered/Not Resolved]
  - Ulna fracture [Unknown]
  - Radius fracture [Unknown]
  - Fatigue [Unknown]
  - Upper limb fracture [Unknown]
  - Onychoclasis [Not Recovered/Not Resolved]
  - Osteopenia [Unknown]
  - Femur fracture [Unknown]
  - Blood immunoglobulin M decreased [Recovered/Resolved]
  - Rash macular [Unknown]
  - Osteoporosis [Unknown]
  - Tibia fracture [Unknown]

NARRATIVE: CASE EVENT DATE: 2014
